FAERS Safety Report 11873701 (Version 1)
Quarter: 2015Q4

REPORT INFORMATION
  Report Type: Report from Study
  Country: US (occurrence: US)
  Receive Date: 20151228
  Receipt Date: 20151228
  Transmission Date: 20160305
  Serious: No
  Sender: FDA-Public Use
  Company Number: US-ALEXION-A201505231

PATIENT
  Sex: Male

DRUGS (1)
  1. SOLIRIS [Suspect]
     Active Substance: ECULIZUMAB
     Indication: HAEMOLYTIC URAEMIC SYNDROME
     Dosage: 300 MG, Q2W
     Route: 042

REACTIONS (4)
  - Pyrexia [Not Recovered/Not Resolved]
  - Influenza [Not Recovered/Not Resolved]
  - Ear disorder [Not Recovered/Not Resolved]
  - Cough [Not Recovered/Not Resolved]

NARRATIVE: CASE EVENT DATE: 2015
